FAERS Safety Report 17039888 (Version 1)
Quarter: 2019Q4

REPORT INFORMATION
  Report Type: Spontaneous
  Country: US (occurrence: US)
  Receive Date: 20191116
  Receipt Date: 20191116
  Transmission Date: 20200122
  Serious: Yes (Hospitalization, Other)
  Sender: FDA-Public Use
  Company Number: US-ACCORD-160556

PATIENT
  Age: 58 Year
  Sex: Male

DRUGS (15)
  1. CYTARABINE/CYTARABINE HYDROCHLORIDE/CYTARABINE OCFOSFATE [Suspect]
     Active Substance: CYTARABINE
     Indication: DIFFUSE LARGE B-CELL LYMPHOMA STAGE IV
     Dosage: EVERY 21 DAYS FOR A USUAL TOTAL OF FOUR CYCLES, COMPLETED THREE TOTAL CYCLES OF MATRIX CHEMOTHERAPY
  2. SULFAMETHOXAZOLE/TRIMETHOPRIM [Concomitant]
     Indication: PROPHYLAXIS
     Dosage: EVERY 21 DAYS FOR A USUAL TOTAL OF FOUR CYCLES, COMPLETED THREE TOTAL CYCLES OF MATRIX CHEMOTHERAPY
  3. ACICLOVIR [Concomitant]
     Active Substance: ACYCLOVIR
     Indication: PROPHYLAXIS
     Dosage: EVERY 21 DAYS FOR A USUAL TOTAL OF FOUR CYCLES, COMPLETED THREE TOTAL CYCLES OF MATRIX CHEMOTHERAPY
  4. METHOTREXATE. [Suspect]
     Active Substance: METHOTREXATE
     Indication: DIFFUSE LARGE B-CELL LYMPHOMA STAGE IV
     Dosage: EVERY 21 DAYS FOR A USUAL TOTAL OF FOUR CYCLES, COMPLETED THREE TOTAL CYCLES OF MATRIX CHEMOTHERAPY
  5. PREDNISONE. [Concomitant]
     Active Substance: PREDNISONE
     Indication: RHEUMATOID ARTHRITIS
     Dosage: EVERY OTHER DAY
  6. THIOTEPA. [Suspect]
     Active Substance: THIOTEPA
     Indication: DIFFUSE LARGE B-CELL LYMPHOMA STAGE IV
     Dosage: EVERY 21 DAYS FOR A USUAL TOTAL OF FOUR CYCLES, COMPLETED THREE TOTAL CYCLES OF MATRIX CHEMOTHERAPY
  7. RITUXIMAB. [Suspect]
     Active Substance: RITUXIMAB
     Indication: METASTASES TO MENINGES
     Dosage: EVERY 21 DAYS FOR A USUAL TOTAL OF FOUR CYCLES, COMPLETED THREE TOTAL CYCLES OF MATRIX CHEMOTHERAPY
  8. RITUXIMAB. [Suspect]
     Active Substance: RITUXIMAB
     Indication: DIFFUSE LARGE B-CELL LYMPHOMA STAGE IV
     Dosage: EVERY 21 DAYS FOR A USUAL TOTAL OF FOUR CYCLES, COMPLETED THREE TOTAL CYCLES OF MATRIX CHEMOTHERAPY
  9. DEXAMETHASONE. [Concomitant]
     Active Substance: DEXAMETHASONE
  10. LISINOPRIL. [Concomitant]
     Active Substance: LISINOPRIL
  11. FOLINIC ACID [Suspect]
     Active Substance: LEUCOVORIN
     Indication: DIFFUSE LARGE B-CELL LYMPHOMA STAGE IV
     Dosage: EVERY 21 DAYS FOR A USUAL TOTAL OF FOUR CYCLES, COMPLETED THREE TOTAL CYCLES OF MATRIX CHEMOTHERAPY
  12. CYTARABINE. [Suspect]
     Active Substance: CYTARABINE
     Indication: DIFFUSE LARGE B-CELL LYMPHOMA STAGE IV
     Dosage: EVERY 21 DAYS FOR A USUAL TOTAL OF FOUR CYCLES, COMPLETED THREE TOTAL CYCLES OF MATRIX CHEMOTHERAPY
  13. METHOTREXATE. [Suspect]
     Active Substance: METHOTREXATE
     Indication: METASTASES TO MENINGES
     Dosage: EVERY 21 DAYS FOR A USUAL TOTAL OF FOUR CYCLES, COMPLETED THREE TOTAL CYCLES OF MATRIX CHEMOTHERAPY
  14. FOLINIC ACID [Suspect]
     Active Substance: LEUCOVORIN
     Indication: DIFFUSE LARGE B-CELL LYMPHOMA STAGE IV
     Dosage: EVERY 21 DAYS FOR A USUAL TOTAL OF FOUR CYCLES, COMPLETED THREE TOTAL CYCLES OF MATRIX CHEMOTHERAPY
  15. THIOTEPA. [Suspect]
     Active Substance: THIOTEPA
     Indication: DIFFUSE LARGE B-CELL LYMPHOMA STAGE IV
     Dosage: EVERY 21 DAYS FOR A USUAL TOTAL OF FOUR CYCLES, COMPLETED THREE TOTAL CYCLES OF MATRIX CHEMOTHERAPY

REACTIONS (8)
  - Sepsis [Recovered/Resolved]
  - Pneumonia [Unknown]
  - Pancytopenia [Unknown]
  - Respiratory failure [Recovering/Resolving]
  - Gastric ulcer haemorrhage [Unknown]
  - Pneumonia aspiration [Unknown]
  - Systemic candida [Recovered/Resolved]
  - Streptococcal bacteraemia [Recovered/Resolved]
